FAERS Safety Report 4642791-0 (Version None)
Quarter: 2005Q2

REPORT INFORMATION
  Report Type: 
  Country: None (occurrence: None)
  Receive Date: 20050420
  Receipt Date: 20050406
  Transmission Date: 20051028
  Serious: Yes (Hospitalization)
  Sender: FDA-Public Use
  Company Number: FR_050406185

PATIENT
  Age: 25 Year
  Sex: Male
  Weight: 88 kg

DRUGS (2)
  1. ZYPREXA [Suspect]
     Dosage: 15 MG DAY
     Dates: start: 20040415, end: 20050125
  2. DEPAKOTE [Concomitant]

REACTIONS (5)
  - ANTINUCLEAR ANTIBODY POSITIVE [None]
  - DIABETIC KETOACIDOSIS [None]
  - HEPATIC STEATOSIS [None]
  - HEPATOCELLULAR DAMAGE [None]
  - HIATUS HERNIA [None]
